FAERS Safety Report 9299358 (Version 2)
Quarter: 2013Q4

REPORT INFORMATION
  Report Type: Spontaneous
  Country: US (occurrence: US)
  Receive Date: 20130520
  Receipt Date: 20131220
  Transmission Date: 20140711
  Serious: Yes (Hospitalization)
  Sender: FDA-Public Use
  Company Number: US-B.I. PHARMACEUTICALS,INC./RIDGEFIELD-2013-BI-13727BP

PATIENT
  Sex: Female
  Weight: 136.08 kg

DRUGS (9)
  1. PRADAXA [Suspect]
     Indication: ANTICOAGULANT THERAPY
     Dates: start: 20110422, end: 20120409
  2. ASPIRIN [Suspect]
     Dates: end: 20120409
  3. ALBUTEROL IPRATROPIUM [Concomitant]
  4. ALLOPURINOL [Concomitant]
  5. AMIODARONE [Concomitant]
  6. COREG [Concomitant]
  7. ERGOCALCIFEROL [Concomitant]
  8. FOLIC ACID [Concomitant]
  9. FUROSEMIDE [Concomitant]

REACTIONS (5)
  - Gastrointestinal haemorrhage [Recovered/Resolved]
  - Haemorrhagic anaemia [Recovered/Resolved]
  - Renal failure acute [Unknown]
  - Hyperkalaemia [Unknown]
  - Thrombocytopenia [Unknown]
